FAERS Safety Report 5200361-X (Version None)
Quarter: 2006Q4

REPORT INFORMATION
  Report Type: 
  Country: None (occurrence: None)
  Receive Date: 20061016
  Receipt Date: 20060719
  Transmission Date: 20070319
  Serious: No
  Sender: FDA-Public Use
  Company Number: 2006SP002741

PATIENT
  Age: 50 Year
  Sex: Female
  Weight: 74.8435 kg

DRUGS (4)
  1. LUNESTA [Suspect]
     Indication: INSOMNIA
     Dosage: 2MG;HS;ORAL
     Route: 048
     Dates: start: 20060701
  2. EFFEXOR [Concomitant]
  3. LEVOTHYROXINE SODIUM [Concomitant]
  4. AMBIEN [Concomitant]

REACTIONS (2)
  - DYSGEUSIA [None]
  - INITIAL INSOMNIA [None]
